FAERS Safety Report 17894906 (Version 1)
Quarter: 2020Q2

REPORT INFORMATION
  Report Type: Report from Study
  Country: CA (occurrence: CA)
  Receive Date: 20200615
  Receipt Date: 20200615
  Transmission Date: 20200714
  Serious: Yes (Hospitalization)
  Sender: FDA-Public Use
  Company Number: CA-JNJFOC-20200609449

PATIENT
  Sex: Female
  Weight: 53 kg

DRUGS (2)
  1. STELARA [Suspect]
     Active Substance: USTEKINUMAB
  2. STELARA [Suspect]
     Active Substance: USTEKINUMAB
     Indication: CROHN^S DISEASE
     Dosage: LAST DOSE WAS TAKEN AT 17-APR-2020
     Route: 058
     Dates: start: 20180117

REACTIONS (3)
  - Product use issue [Unknown]
  - Lung neoplasm malignant [Unknown]
  - Off label use [Unknown]
